FAERS Safety Report 4952310-7 (Version None)
Quarter: 2006Q1

REPORT INFORMATION
  Report Type: 
  Country: None (occurrence: None)
  Receive Date: 20060131
  Receipt Date: 20050302
  Transmission Date: 20060701
  Serious: Yes (Hospitalization)
  Sender: FDA-Public Use
  Company Number: WAES 0503USA00380

PATIENT
  Sex: Male

DRUGS (2)
  1. INVANZ [Suspect]
     Indication: DIVERTICULITIS
     Dosage: 1 GM DAILY IV
     Route: 042
     Dates: start: 20050302, end: 20050302
  2. ANALGESIC OR ANESTHETIC [Concomitant]

REACTIONS (1)
  - RASH GENERALISED [None]
